FAERS Safety Report 25149915 (Version 1)
Quarter: 2025Q2

REPORT INFORMATION
  Report Type: Spontaneous
  Country: US (occurrence: None)
  Receive Date: 20250401
  Receipt Date: 20250401
  Transmission Date: 20250717
  Serious: Yes (Hospitalization)
  Sender: FDA-CTU
  Company Number: None

PATIENT
  Sex: Male

DRUGS (1)
  1. HUMIRA [Suspect]
     Active Substance: ADALIMUMAB
     Indication: Rheumatoid arthritis
     Route: 058

REACTIONS (6)
  - Therapy interrupted [None]
  - Illness [None]
  - Peripheral swelling [None]
  - Pain [None]
  - Musculoskeletal stiffness [None]
  - Clostridium difficile infection [None]
